FAERS Safety Report 14362718 (Version 1)
Quarter: 2018Q1

REPORT INFORMATION
  Report Type: Spontaneous
  Country: US (occurrence: US)
  Receive Date: 20180105
  Receipt Date: 20180105
  Transmission Date: 20180509
  Serious: Yes (Hospitalization, Disabling)
  Sender: FDA-Public Use
  Company Number: None

PATIENT
  Age: 60 Year
  Sex: Male
  Weight: 101.25 kg

DRUGS (3)
  1. LICINOPRIL [Concomitant]
  2. CEPHALEXIN. [Suspect]
     Active Substance: CEPHALEXIN
     Indication: LYMPHADENOPATHY
     Route: 048
     Dates: start: 20170105, end: 20170110
  3. MULTI VITAMIN [Concomitant]
     Active Substance: VITAMINS

REACTIONS (5)
  - Pain in extremity [None]
  - Feeling abnormal [None]
  - Nerve injury [None]
  - Peripheral vascular disorder [None]
  - Oropharyngeal pain [None]

NARRATIVE: CASE EVENT DATE: 20170110
